FAERS Safety Report 9697733 (Version 1)
Quarter: 2013Q4

REPORT INFORMATION
  Report Type: Spontaneous
  Country: DE (occurrence: None)
  Receive Date: 20131104
  Receipt Date: 20131104
  Transmission Date: 20140711
  Serious: Yes (Other)
  Sender: FDA-Public Use
  Company Number: 2013038512

PATIENT
  Age: 62 Year
  Sex: Male

DRUGS (2)
  1. PRIVIGEN (IMMUNE GLOBULIN INTRAVENOUS (HUMAN) 10% LIQUID) [Suspect]
     Indication: IMMUNODEFICIENCY COMMON VARIABLE
     Route: 042
     Dates: start: 20130207, end: 20130207
  2. ASTHMA-SPRAY (SALBUTAMOL) [Concomitant]

REACTIONS (4)
  - Retinal vein occlusion [None]
  - Visual acuity reduced [None]
  - Macular oedema [None]
  - Upper respiratory tract infection [None]
